FAERS Safety Report 11037656 (Version 1)
Quarter: 2015Q2

REPORT INFORMATION
  Report Type: Spontaneous
  Country: US (occurrence: None)
  Receive Date: 20150415
  Receipt Date: 20150415
  Transmission Date: 20150821
  Serious: Yes (Hospitalization)
  Sender: FDA-Public Use
  Company Number: None

PATIENT
  Age: 31 Year
  Sex: Female
  Weight: 91.17 kg

DRUGS (6)
  1. VIT. D [Concomitant]
  2. FLAGYL [Suspect]
     Active Substance: METRONIDAZOLE\METRONIDAZOLE HYDROCHLORIDE
     Route: 048
  3. CYMBALTA [Concomitant]
     Active Substance: DULOXETINE HYDROCHLORIDE
  4. HUMIRA [Concomitant]
     Active Substance: ADALIMUMAB
  5. LIALDA [Concomitant]
     Active Substance: MESALAMINE
  6. MULTI-VITAMIN [Concomitant]
     Active Substance: .ALPHA.-TOCOPHEROL ACETATE, DL-\ASCORBIC ACID\CYANOCOBALAMIN\FLUORIDE ION\FOLIC ACID\NIACIN\PYRIDOXINE\RIBOFLAVIN\THIAMINE\VITAMIN A\VITAMIN D

REACTIONS (8)
  - Drug ineffective [None]
  - Nausea [None]
  - Abdominal pain [None]
  - Migraine [None]
  - Pyrexia [None]
  - Vomiting [None]
  - Feeling hot [None]
  - Diarrhoea [None]

NARRATIVE: CASE EVENT DATE: 20140416
